FAERS Safety Report 9870249 (Version 1)
Quarter: 2014Q1

REPORT INFORMATION
  Report Type: Spontaneous
  Country: GB (occurrence: GB)
  Receive Date: 20140205
  Receipt Date: 20140205
  Transmission Date: 20141002
  Serious: Yes (Other)
  Sender: FDA-Public Use
  Company Number: GB-PFIZER INC-2014030450

PATIENT
  Age: 62 Year
  Sex: Female
  Weight: 100 kg

DRUGS (2)
  1. GABAPENTIN [Suspect]
     Indication: ANALGESIC THERAPY
     Dosage: UNK AS DIRECTED (INCREASING DOSE)
     Route: 048
     Dates: start: 20140116, end: 20140120
  2. AMITRIPTYLINE [Concomitant]
     Dosage: UNK

REACTIONS (2)
  - Insomnia [Recovered/Resolved]
  - Disorientation [Unknown]
